FAERS Safety Report 11849057 (Version 1)
Quarter: 2015Q4

REPORT INFORMATION
  Report Type: Spontaneous
  Country: KR (occurrence: KR)
  Receive Date: 20151218
  Receipt Date: 20151218
  Transmission Date: 20160305
  Serious: Yes (Other)
  Sender: FDA-Public Use
  Company Number: KR-AMGEN-KORCT2015135148

PATIENT
  Age: 80 Year
  Sex: Female

DRUGS (12)
  1. FEROBA U [Concomitant]
     Dosage: 2 DF, UNK
     Route: 048
     Dates: start: 20140428
  2. ADALAT [Concomitant]
     Active Substance: NIFEDIPINE
     Dosage: 1 DF, UNK
     Route: 048
     Dates: start: 20140428
  3. TASNA [Concomitant]
     Dosage: 1 DF, UNK
     Route: 048
     Dates: start: 20140428
  4. CALCIO                             /00183801/ [Concomitant]
     Dosage: 1/TAB
     Route: 048
     Dates: start: 20140321, end: 20150908
  5. RENALMIN [Concomitant]
     Dosage: 1 DF, UNK
     Route: 048
     Dates: start: 20140428
  6. LASIX [Concomitant]
     Active Substance: FUROSEMIDE
     Dosage: 40 MG, UNK
     Route: 048
     Dates: start: 20140428
  7. JOINS [Concomitant]
     Dosage: 2 DF, UNK
     Route: 048
     Dates: start: 20140428
  8. REGPARA [Suspect]
     Active Substance: CINACALCET HYDROCHLORIDE
     Indication: HYPERPARATHYROIDISM SECONDARY
     Dosage: 25 MG, QD
     Route: 048
     Dates: start: 20150519
  9. CALCIO                             /00514701/ [Concomitant]
     Dosage: 0.25 MUG, UNK
     Route: 048
  10. OLMEC [Concomitant]
     Dosage: 1/TAB
     Route: 048
     Dates: start: 20140428
  11. GALVUS [Concomitant]
     Active Substance: VILDAGLIPTIN
     Dosage: 1 DF, UNK
     Route: 048
     Dates: start: 20140428
  12. NEUROCOVER [Concomitant]
     Dosage: 2 DF, UNK
     Route: 048
     Dates: start: 20140428

REACTIONS (1)
  - Atrial fibrillation [Not Recovered/Not Resolved]

NARRATIVE: CASE EVENT DATE: 20150704
